FAERS Safety Report 19211235 (Version 2)
Quarter: 2021Q2

REPORT INFORMATION
  Report Type: Spontaneous
  Country: CA (occurrence: CA)
  Receive Date: 20210504
  Receipt Date: 20210504
  Transmission Date: 20210717
  Serious: Yes (Death, Hospitalization)
  Sender: FDA-Public Use
  Company Number: CA-PERRIGO-21CA005277

PATIENT
  Age: 24 Year
  Sex: Female

DRUGS (3)
  1. MORPHINE SULFATE. [Suspect]
     Active Substance: MORPHINE SULFATE
     Indication: OVERDOSE
     Dosage: 60 MG, QD
     Route: 048
  2. GABAPENTIN. [Suspect]
     Active Substance: GABAPENTIN
     Indication: OVERDOSE
     Dosage: 25.5 G, QD
     Route: 048
  3. ACETAMINOPHEN. [Suspect]
     Active Substance: ACETAMINOPHEN
     Indication: OVERDOSE
     Dosage: 50 G, QD
     Route: 048

REACTIONS (8)
  - Hypoglycaemia [Fatal]
  - Encephalopathy [Fatal]
  - Brain oedema [Fatal]
  - Acute hepatic failure [Fatal]
  - Ileus [Fatal]
  - Coagulopathy [Fatal]
  - Lactic acidosis [Fatal]
  - Overdose [Fatal]
